FAERS Safety Report 12939496 (Version 1)
Quarter: 2016Q4

REPORT INFORMATION
  Report Type: Spontaneous
  Country: SE (occurrence: SE)
  Receive Date: 20161115
  Receipt Date: 20161115
  Transmission Date: 20170207
  Serious: Yes (Hospitalization, Other)
  Sender: FDA-Public Use
  Company Number: SE-PFIZER INC-2016525165

PATIENT
  Age: 37 Year
  Sex: Male

DRUGS (1)
  1. XANOR [Suspect]
     Active Substance: ALPRAZOLAM
     Dosage: 2 MG, 10-12 TABLETS
     Dates: start: 20161024, end: 20161024

REACTIONS (3)
  - Toxicity to various agents [Unknown]
  - Epilepsy [Recovered/Resolved]
  - Fatigue [Unknown]

NARRATIVE: CASE EVENT DATE: 201610
